FAERS Safety Report 11431357 (Version 1)
Quarter: 2015Q3

REPORT INFORMATION
  Report Type: Spontaneous
  Country: US (occurrence: US)
  Receive Date: 20150828
  Receipt Date: 20150828
  Transmission Date: 20151125
  Serious: No
  Sender: FDA-Public Use
  Company Number: US-MYLANLABS-2014M1010414

PATIENT
  Sex: Male

DRUGS (1)
  1. TEMAZEPAM CAPSULES USP [Suspect]
     Active Substance: TEMAZEPAM
     Indication: INSOMNIA
     Dosage: 15 MG, HS
     Route: 048

REACTIONS (5)
  - Malaise [Recovered/Resolved]
  - Aggression [Recovered/Resolved]
  - Hangover [Recovered/Resolved]
  - Drug ineffective [Recovered/Resolved]
  - Disturbance in attention [Recovered/Resolved]
